FAERS Safety Report 11805148 (Version 3)
Quarter: 2016Q1

REPORT INFORMATION
  Report Type: Spontaneous
  Country: US (occurrence: US)
  Receive Date: 20151206
  Receipt Date: 20160119
  Transmission Date: 20160525
  Serious: No
  Sender: FDA-Public Use
  Company Number: US-TEVA-615636USA

PATIENT
  Sex: Female

DRUGS (1)
  1. PROAIR HFA [Suspect]
     Active Substance: ALBUTEROL SULFATE
     Route: 065
     Dates: start: 201504

REACTIONS (2)
  - Drug ineffective [Unknown]
  - Drug effect decreased [Unknown]
